FAERS Safety Report 9693867 (Version 2)
Quarter: 2013Q4

REPORT INFORMATION
  Report Type: Spontaneous
  Country: US (occurrence: US)
  Receive Date: 20131118
  Receipt Date: 20131118
  Transmission Date: 20140711
  Serious: No
  Sender: FDA-Public Use
  Company Number: US-GILEAD-2013-0085639

PATIENT
  Sex: Female

DRUGS (2)
  1. LETAIRIS [Suspect]
     Indication: PULMONARY ARTERIAL HYPERTENSION
     Dosage: 5 MG, QD
     Dates: start: 20121129
  2. ADCIRCA [Concomitant]

REACTIONS (4)
  - Respiratory tract infection [Unknown]
  - Epistaxis [Unknown]
  - Nasal congestion [Unknown]
  - Nasopharyngitis [Unknown]
